FAERS Safety Report 9313928 (Version 2)
Quarter: 2013Q3

REPORT INFORMATION
  Report Type: Spontaneous
  Country: US (occurrence: US)
  Receive Date: 20130529
  Receipt Date: 20130904
  Transmission Date: 20140515
  Serious: No
  Sender: FDA-Public Use
  Company Number: US-BIOGENIDEC-2013BI047723

PATIENT
  Sex: Female

DRUGS (1)
  1. TYSABRI [Suspect]
     Indication: MULTIPLE SCLEROSIS
     Route: 042
     Dates: start: 20130402

REACTIONS (40)
  - Burning sensation [Unknown]
  - Decreased immune responsiveness [Unknown]
  - Insomnia [Unknown]
  - Memory impairment [Unknown]
  - Emotional disorder [Unknown]
  - Weight decreased [Unknown]
  - Mydriasis [Unknown]
  - Central nervous system lesion [Unknown]
  - Visual impairment [Unknown]
  - Infectious mononucleosis [Unknown]
  - Hand-foot-and-mouth disease [Unknown]
  - Pain in extremity [Unknown]
  - Aphasia [Unknown]
  - Dysarthria [Unknown]
  - Food allergy [Unknown]
  - Dermatitis contact [Unknown]
  - Drug intolerance [Unknown]
  - Hypoaesthesia [Unknown]
  - Mass [Unknown]
  - Panic attack [Unknown]
  - Lip swelling [Unknown]
  - Seborrhoea [Unknown]
  - Abdominal pain upper [Unknown]
  - Coordination abnormal [Unknown]
  - Dysphonia [Unknown]
  - Parosmia [Unknown]
  - Pupils unequal [Unknown]
  - Perfume sensitivity [Unknown]
  - Coeliac disease [Unknown]
  - Pharyngitis streptococcal [Unknown]
  - Tonsillitis [Unknown]
  - Gastroenteritis viral [Unknown]
  - Hypersensitivity [Unknown]
  - Viral infection [Unknown]
  - Headache [Unknown]
  - Fatigue [Unknown]
  - Rash [Unknown]
  - Dyspnoea [Unknown]
  - Flushing [Unknown]
  - Pyrexia [Unknown]
